FAERS Safety Report 7262026-2 (Version None)
Quarter: 2011Q1

REPORT INFORMATION
  Report Type: 
  Country: None (occurrence: None)
  Receive Date: 20110130
  Receipt Date: 20101104
  Transmission Date: 20110831
  Serious: No
  Sender: FDA-Public Use
  Company Number: US-ABBOTT-10P-163-0683523-00

PATIENT
  Age: 25 Year
  Sex: Female

DRUGS (9)
  1. PREDNISONE [Concomitant]
     Indication: IMMUNOSUPPRESSION
     Dosage: 4MG DAILY
     Route: 048
  2. ALLEGRA D 24 HOUR [Concomitant]
     Indication: SINUS DISORDER
     Dosage: 60MG DAILY
     Route: 048
  3. HUMIRA [Suspect]
     Indication: CROHN'S DISEASE
     Dates: start: 20090801
  4. VITAMIN B-12 [Concomitant]
     Indication: PRODUCT USED FOR UNKNOWN INDICATION
     Dosage: MONTHLY
  5. FLONASE [Concomitant]
     Indication: PRODUCT USED FOR UNKNOWN INDICATION
     Dosage: NASAL SPRAY
  6. FERROUS SULFATE TAB [Concomitant]
     Indication: BLOOD IRON
     Dosage: 650MG DAILY
     Route: 048
  7. CALCIUM [Concomitant]
     Indication: PRODUCT USED FOR UNKNOWN INDICATION
     Dosage: DAILY
     Route: 048
  8. IMURAN [Concomitant]
     Indication: IMMUNOSUPPRESSION
     Dosage: 100MG DAILY
     Route: 048
     Dates: start: 20090701
  9. MULTI-VITAMIN [Concomitant]
     Indication: PRODUCT USED FOR UNKNOWN INDICATION
     Dosage: DAILY
     Route: 048

REACTIONS (1)
  - SWELLING FACE [None]
